FAERS Safety Report 7444506-X (Version None)
Quarter: 2011Q2

REPORT INFORMATION
  Report Type: 
  Country: None (occurrence: None)
  Receive Date: 20110427
  Receipt Date: 20110427
  Transmission Date: 20111010
  Serious: Yes (Other)
  Sender: FDA-Public Use
  Company Number: None

PATIENT
  Age: 50 Year
  Sex: Female
  Weight: 64.3 kg

DRUGS (1)
  1. METRONIDAZOLE [Suspect]
     Indication: CLOSTRIDIAL INFECTION
     Dosage: 500 MG Q8H IV
     Route: 042
     Dates: start: 20110403, end: 20110407

REACTIONS (4)
  - DIARRHOEA [None]
  - VOMITING [None]
  - LEUKOPENIA [None]
  - NAUSEA [None]
